FAERS Safety Report 5956517-1 (Version None)
Quarter: 2008Q4

REPORT INFORMATION
  Report Type: 
  Country: None (occurrence: None)
  Receive Date: 20081118
  Receipt Date: 20081114
  Transmission Date: 20090506
  Serious: Yes (Death, Life-Threatening)
  Sender: FDA-Public Use
  Company Number: B0541159A

PATIENT
  Age: 90 Year
  Sex: Male
  Weight: 40 kg

DRUGS (7)
  1. ARIXTRA [Suspect]
     Indication: THROMBOSIS PROPHYLAXIS
     Dosage: 2.5MG PER DAY
     Route: 058
     Dates: start: 20080930, end: 20081003
  2. UNASYN [Concomitant]
     Dosage: 3G PER DAY
     Route: 042
     Dates: start: 20080923, end: 20080928
  3. PANSPORIN [Concomitant]
     Indication: INFECTION PROPHYLAXIS
     Dosage: 2G PER DAY
     Route: 065
     Dates: start: 20080929, end: 20081001
  4. GLAKAY [Concomitant]
     Indication: OSTEOPOROSIS
     Dosage: 45MG PER DAY
     Route: 048
     Dates: start: 20080930, end: 20081003
  5. ASPARA-CA [Concomitant]
     Indication: OSTEOPOROSIS
     Dosage: 600MG PER DAY
     Route: 048
     Dates: start: 20080930, end: 20081003
  6. MYSLEE [Concomitant]
     Indication: INSOMNIA
     Dosage: 10MG PER DAY
     Route: 048
     Dates: start: 20080926, end: 20081002
  7. VOLTAREN [Concomitant]
     Indication: PAIN
     Route: 054
     Dates: start: 20080929, end: 20080929

REACTIONS (6)
  - APNOEA [None]
  - BRAIN DEATH [None]
  - CYANOSIS [None]
  - INSOMNIA [None]
  - SUBARACHNOID HAEMORRHAGE [None]
  - SUBDURAL HAEMORRHAGE [None]
